FAERS Safety Report 17940676 (Version 1)
Quarter: 2020Q2

REPORT INFORMATION
  Report Type: Spontaneous
  Country: US (occurrence: US)
  Receive Date: 20200624
  Receipt Date: 20200624
  Transmission Date: 20200714
  Serious: No
  Sender: FDA-Public Use
  Company Number: US-TARO-2019TAR00741

PATIENT
  Age: 59 Year
  Sex: Male

DRUGS (6)
  1. NORTRIPTYLINE HCL CAPSULES 75 MG [Suspect]
     Active Substance: NORTRIPTYLINE HYDROCHLORIDE
     Dosage: 150 MG, 1X/DAY AT BEDTIME
     Route: 048
  2. IMITREX [Concomitant]
     Active Substance: SUMATRIPTAN SUCCINATE
  3. NORTRIPTYLINE HCL CAPSULES 75 MG [Suspect]
     Active Substance: NORTRIPTYLINE HYDROCHLORIDE
     Indication: DEPRESSION
     Dosage: 75 MG, 1X/DAY (WITH 50 MG CAPSULE FOR TOTAL OF 125 MG DAILY) AT BEDTIME
     Route: 048
  4. NORTRIPTYLINE HCL CAPSULES 50 MG [Suspect]
     Active Substance: NORTRIPTYLINE HYDROCHLORIDE
     Indication: DEPRESSION
  5. NORTRIPTYLINE HCL CAPSULES 75 MG [Suspect]
     Active Substance: NORTRIPTYLINE HYDROCHLORIDE
     Indication: MIGRAINE
     Dosage: 150 MG, 1X/DAY AT BEDTIME
     Route: 048
     Dates: start: 1999
  6. NORTRIPTYLINE HCL CAPSULES 50 MG [Suspect]
     Active Substance: NORTRIPTYLINE HYDROCHLORIDE
     Indication: MIGRAINE
     Dosage: 50 MG, 1X/DAY (WITH 75 MG CAPSULE FOR TOTAL OF 125 MG DAILY)
     Route: 048

REACTIONS (3)
  - Withdrawal syndrome [Unknown]
  - Prostatic disorder [Recovered/Resolved]
  - Migraine [Recovered/Resolved]
